FAERS Safety Report 8999583 (Version 1)
Quarter: 2013Q1

REPORT INFORMATION
  Report Type: Spontaneous
  Country: US (occurrence: US)
  Receive Date: 20130102
  Receipt Date: 20130102
  Transmission Date: 20140127
  Serious: No
  Sender: FDA-Public Use
  Company Number: US-AMGEN-USASP2012081606

PATIENT
  Sex: Male

DRUGS (1)
  1. ENBREL [Suspect]
     Indication: PSORIATIC ARTHROPATHY
     Dosage: 50 MG, QWK
     Dates: start: 20100715, end: 20121126

REACTIONS (4)
  - Respiratory disorder [Recovered/Resolved]
  - Back pain [Recovered/Resolved]
  - Muscle strain [Recovered/Resolved]
  - Nasopharyngitis [Recovered/Resolved]
